FAERS Safety Report 26137002 (Version 1)
Quarter: 2025Q4

REPORT INFORMATION
  Report Type: Report from Study
  Country: CA (occurrence: CA)
  Receive Date: 20251209
  Receipt Date: 20251209
  Transmission Date: 20260117
  Serious: Yes (Hospitalization, Other)
  Sender: GILEAD
  Company Number: CA-GILEAD-2025-0739197

PATIENT
  Age: 40 Year
  Sex: Male

DRUGS (1)
  1. BICTEGRAVIR\EMTRICITABINE\TENOFOVIR ALAFENAMIDE [Suspect]
     Active Substance: BICTEGRAVIR\EMTRICITABINE\TENOFOVIR ALAFENAMIDE
     Indication: HIV infection
     Dosage: 1 TAB ONCE A DAY BY MOUTH
     Route: 048
     Dates: start: 2018

REACTIONS (5)
  - Coronavirus infection [Unknown]
  - Immunoglobulin G4 related disease [Not Recovered/Not Resolved]
  - Lymphoma [Not Recovered/Not Resolved]
  - Eye infection [Not Recovered/Not Resolved]
  - Product dose omission issue [Unknown]

NARRATIVE: CASE EVENT DATE: 20180101
